FAERS Safety Report 21020857 (Version 3)
Quarter: 2022Q3

REPORT INFORMATION
  Report Type: Report from Study
  Country: KR (occurrence: KR)
  Receive Date: 20220629
  Receipt Date: 20220725
  Transmission Date: 20221026
  Serious: Yes (Hospitalization, Other)
  Sender: FDA-Public Use
  Company Number: KR-BRISTOL-MYERS SQUIBB COMPANY-2022-063315

PATIENT
  Age: 63 Year
  Sex: Male
  Weight: 60.9 kg

DRUGS (9)
  1. NIVOLUMAB [Suspect]
     Active Substance: NIVOLUMAB
     Indication: Gastrooesophageal cancer
     Route: 042
     Dates: start: 20220520, end: 20220615
  2. REGORAFENIB [Suspect]
     Active Substance: REGORAFENIB
     Indication: Gastrooesophageal cancer
     Route: 048
     Dates: start: 20220520, end: 20220621
  3. PLAVIX [Concomitant]
     Active Substance: CLOPIDOGREL BISULFATE
     Indication: Product used for unknown indication
     Route: 048
  4. SALON (METHYLPREDNISOLONE) [Concomitant]
     Indication: Gastrooesophageal cancer
     Route: 042
     Dates: start: 20220621
  5. MEGACE [Concomitant]
     Active Substance: MEGESTROL ACETATE
     Indication: Gastrooesophageal cancer
     Route: 048
     Dates: start: 20220622
  6. HARNAL [Concomitant]
     Active Substance: TAMSULOSIN HYDROCHLORIDE
     Indication: Gastrooesophageal cancer
     Route: 048
     Dates: start: 20220622
  7. NEXIUM [Concomitant]
     Active Substance: ESOMEPRAZOLE MAGNESIUM
     Indication: Gastrooesophageal cancer
     Route: 048
     Dates: start: 20220622
  8. DIGOXIN [Concomitant]
     Active Substance: DIGOXIN
     Indication: Product used for unknown indication
     Route: 042
     Dates: start: 20220701
  9. ALTEPLASE [Concomitant]
     Active Substance: ALTEPLASE
     Indication: Product used for unknown indication
     Route: 042
     Dates: start: 20220701

REACTIONS (1)
  - Pneumonia [Unknown]

NARRATIVE: CASE EVENT DATE: 20220621
